FAERS Safety Report 11446000 (Version 2)
Quarter: 2016Q1

REPORT INFORMATION
  Report Type: Spontaneous
  Country: US (occurrence: US)
  Receive Date: 20150902
  Receipt Date: 20160218
  Transmission Date: 20160525
  Serious: Yes (Other)
  Sender: FDA-Public Use
  Company Number: PHEH2015US016780

PATIENT
  Age: 81 Year
  Sex: Female
  Weight: 113 kg

DRUGS (1)
  1. FARYDAK [Suspect]
     Active Substance: PANOBINOSTAT
     Indication: PLASMA CELL MYELOMA
     Dosage: 15 MG, DAILY DAYS 1,3,5,8,10,12 UNK
     Dates: start: 20150713, end: 20150915

REACTIONS (12)
  - Monocytosis [Unknown]
  - Glomerular filtration rate decreased [Unknown]
  - Blood immunoglobulin M decreased [Unknown]
  - Albumin globulin ratio decreased [Unknown]
  - Thrombocytopenia [Recovered/Resolved]
  - Blood glucose increased [Unknown]
  - Diarrhoea [Recovered/Resolved]
  - Neutrophilia [Unknown]
  - Carbon dioxide decreased [Unknown]
  - Blood calcium decreased [Unknown]
  - Blood immunoglobulin G increased [Unknown]
  - Blood immunoglobulin A decreased [Unknown]

NARRATIVE: CASE EVENT DATE: 20150720
